FAERS Safety Report 15579296 (Version 2)
Quarter: 2018Q4

REPORT INFORMATION
  Report Type: Spontaneous
  Country: US (occurrence: US)
  Receive Date: 20181102
  Receipt Date: 20181105
  Transmission Date: 20190205
  Serious: Yes (Other)
  Sender: FDA-Public Use
  Company Number: US-SA-2018SA047090

PATIENT
  Age: 64 Year
  Sex: Female

DRUGS (7)
  1. ACTINOMYCIN C [Concomitant]
     Active Substance: CACTINOMYCIN
     Dosage: UNK UNK, UNK
     Route: 065
  2. ADRIAMYCIN [Concomitant]
     Active Substance: DOXORUBICIN HYDROCHLORIDE
     Dosage: UNK UNK, UNK
     Route: 065
  3. HERCEPTIN [Concomitant]
     Active Substance: TRASTUZUMAB
     Dosage: UNK UNK, UNK
     Route: 065
  4. TAXOTERE [Suspect]
     Active Substance: DOCETAXEL
     Indication: BREAST CANCER
     Dosage: UNK UNK,UNK
     Route: 042
     Dates: start: 201107, end: 201107
  5. TAXOTERE [Suspect]
     Active Substance: DOCETAXEL
     Dosage: UNK
     Route: 042
     Dates: start: 20120901, end: 20120901
  6. NEOSAR [Concomitant]
     Active Substance: CYCLOPHOSPHAMIDE
     Dosage: UNK UNK, UNK
     Route: 065
  7. CYTOXAN [Concomitant]
     Active Substance: CYCLOPHOSPHAMIDE
     Dosage: UNK UNK, UNK
     Route: 065

REACTIONS (6)
  - Anxiety [Unknown]
  - Emotional distress [Unknown]
  - Alopecia [Recovering/Resolving]
  - Psychological trauma [Unknown]
  - Pain [Unknown]
  - Impaired quality of life [Unknown]

NARRATIVE: CASE EVENT DATE: 20110731
